FAERS Safety Report 10564732 (Version 4)
Quarter: 2015Q1

REPORT INFORMATION
  Report Type: Report from Study
  Country: JP (occurrence: JP)
  Receive Date: 20141105
  Receipt Date: 20150123
  Transmission Date: 20150720
  Serious: Yes (Hospitalization, Other)
  Sender: FDA-Public Use
  Company Number: JP-PFIZER INC-2014301285

PATIENT
  Age: 65 Year
  Sex: Male
  Weight: 54 kg

DRUGS (8)
  1. XALKORI [Suspect]
     Active Substance: CRIZOTINIB
     Indication: NON-SMALL CELL LUNG CANCER
     Dosage: 250 MG, 2X/DAY
     Route: 048
     Dates: start: 20131112, end: 20131219
  2. BAKTAR [Concomitant]
     Active Substance: SULFAMETHOXAZOLE\TRIMETHOPRIM
     Dosage: 1 DF, 1X/DAY
     Route: 048
     Dates: start: 20131227
  3. XALKORI [Suspect]
     Active Substance: CRIZOTINIB
     Dosage: 250 MG, 1X/DAY
     Route: 048
     Dates: start: 20131220, end: 20140123
  4. BASEN OD [Suspect]
     Active Substance: VOGLIBOSE
     Dosage: 0.2 MG, 3X/DAY
     Route: 048
     Dates: start: 20140210, end: 20140321
  5. PROHEPARUM [Concomitant]
     Active Substance: CHOLINE BITARTRATE\CYSTEINE\INOSITOL\MAMMAL LIVER
     Dosage: 1 DF, 3X/DAY
     Route: 048
     Dates: start: 20131219
  6. DECADRON [Concomitant]
     Active Substance: DEXAMETHASONE
     Dosage: 0.5 MG, 1X/DAY
     Route: 048
     Dates: start: 20131209, end: 20140321
  7. RABEPRAZOLE [Concomitant]
     Active Substance: RABEPRAZOLE
     Dosage: 10 MG, 1X/DAY
     Route: 048
     Dates: start: 20131010
  8. XALKORI [Suspect]
     Active Substance: CRIZOTINIB
     Dosage: 200 MG, 2X/DAY
     Route: 048
     Dates: start: 20140124, end: 20140320

REACTIONS (1)
  - Pneumatosis intestinalis [Recovered/Resolved with Sequelae]

NARRATIVE: CASE EVENT DATE: 20140319
